FAERS Safety Report 6021470-1 (Version None)
Quarter: 2008Q4

REPORT INFORMATION
  Report Type: 
  Country: None (occurrence: None)
  Receive Date: 20081229
  Receipt Date: 20081126
  Transmission Date: 20090506
  Serious: No
  Sender: FDA-Public Use
  Company Number: US-BAYER-200814652BCC

PATIENT
  Age: 81 Year
  Sex: Male
  Weight: 113 kg

DRUGS (2)
  1. ALEVE [Suspect]
     Indication: DRUG USE FOR UNKNOWN INDICATION
     Dosage: UNIT DOSE: 220 MG
  2. DIURETIC NOS [Concomitant]

REACTIONS (1)
  - POLYURIA [None]
